FAERS Safety Report 7722975-5 (Version None)
Quarter: 2011Q3

REPORT INFORMATION
  Report Type: 
  Country: None (occurrence: None)
  Receive Date: 20110901
  Receipt Date: 20110822
  Transmission Date: 20111222
  Serious: Yes (Other)
  Sender: FDA-Public Use
  Company Number: NO-BRISTOL-MYERS SQUIBB COMPANY-16016768

PATIENT
  Age: 65 Year
  Sex: Female

DRUGS (2)
  1. METFORMIN HCL [Suspect]
  2. ENALAPRIL MALEATE AND HYDROCHLOROTHIAZIDE [Suspect]

REACTIONS (2)
  - RENAL FAILURE [None]
  - LACTIC ACIDOSIS [None]
